FAERS Safety Report 6483504-X (Version None)
Quarter: 2009Q4

REPORT INFORMATION
  Report Type: 
  Country: None (occurrence: None)
  Receive Date: 20091123
  Receipt Date: 20090728
  Transmission Date: 20100525
  Serious: No
  Sender: FDA-Public Use
  Company Number: 8049581

PATIENT
  Sex: Female
  Weight: 81.6 kg

DRUGS (12)
  1. CIMZIA [Suspect]
     Indication: CROHN'S DISEASE
     Dosage: 400 MG SC
     Route: 058
     Dates: start: 20090501
  2. PENTASA [Concomitant]
  3. IMURAN [Concomitant]
  4. FOLIC ACID [Concomitant]
  5. LORATADINE [Concomitant]
  6. SINGULAIR [Concomitant]
  7. PREVACID [Concomitant]
  8. CELEBREX [Concomitant]
  9. VITAMIN B-12 [Concomitant]
  10. HYDROCODONE [Concomitant]
  11. PHENERGAN HCL [Concomitant]
  12. ALBUTEROL [Concomitant]

REACTIONS (5)
  - ARTHRALGIA [None]
  - INJECTION SITE DISCOLOURATION [None]
  - INJECTION SITE HAEMATOMA [None]
  - ORAL CANDIDIASIS [None]
  - RASH [None]
